FAERS Safety Report 19055504 (Version 1)
Quarter: 2021Q1

REPORT INFORMATION
  Report Type: Spontaneous
  Country: US (occurrence: US)
  Receive Date: 20210324
  Receipt Date: 20210324
  Transmission Date: 20210420
  Serious: No
  Sender: FDA-Public Use
  Company Number: US-ELI_LILLY_AND_COMPANY-US202102012657

PATIENT
  Sex: Male

DRUGS (5)
  1. INSULIN  LISPRO [Suspect]
     Active Substance: INSULIN LISPRO
     Dosage: 35 U, PRN (3?4 TIMES)
     Route: 058
  2. VICTOZA [Concomitant]
     Active Substance: LIRAGLUTIDE
     Indication: TYPE 2 DIABETES MELLITUS
  3. INSULIN  LISPRO [Suspect]
     Active Substance: INSULIN LISPRO
     Dosage: 35 U, PRN (3?4 TIMES)
     Route: 058
  4. INSULIN  LISPRO [Suspect]
     Active Substance: INSULIN LISPRO
     Indication: TYPE 2 DIABETES MELLITUS
     Dosage: 35 U, PRN (3?4 TIMES)
     Route: 058
     Dates: start: 202008
  5. TOUJEO [Concomitant]
     Active Substance: INSULIN GLARGINE
     Indication: TYPE 2 DIABETES MELLITUS

REACTIONS (1)
  - Blood glucose increased [Unknown]
